FAERS Safety Report 7711838-7 (Version None)
Quarter: 2011Q3

REPORT INFORMATION
  Report Type: 
  Country: None (occurrence: None)
  Receive Date: 20110826
  Receipt Date: 20110822
  Transmission Date: 20111222
  Serious: Yes (Other)
  Sender: FDA-Public Use
  Company Number: US-SANOFI-AVENTIS-2011SA048639

PATIENT
  Sex: Female

DRUGS (8)
  1. METOPROLOL [Concomitant]
     Indication: PALPITATIONS
     Route: 048
  2. VITAMIN TAB [Concomitant]
  3. CORTICOSTEROID NOS [Concomitant]
  4. ZANTAC [Concomitant]
  5. CRESTOR [Concomitant]
  6. SOMA [Concomitant]
  7. MULTAQ [Suspect]
     Indication: ATRIAL FIBRILLATION
     Route: 048
     Dates: start: 20090101
  8. VITAMINS WITH MINERALS [Concomitant]

REACTIONS (3)
  - DIZZINESS [None]
  - PALPITATIONS [None]
  - ATRIAL FIBRILLATION [None]
